FAERS Safety Report 11923932 (Version 5)
Quarter: 2016Q2

REPORT INFORMATION
  Report Type: Spontaneous
  Country: IT (occurrence: IT)
  Receive Date: 20160118
  Receipt Date: 20160413
  Transmission Date: 20160815
  Serious: Yes (Other)
  Sender: FDA-Public Use
  Company Number: IT-JNJFOC-20151124788

PATIENT
  Age: 56 Year
  Sex: Female
  Weight: 48 kg

DRUGS (4)
  1. YONDELIS [Concomitant]
     Active Substance: TRABECTEDIN
     Indication: OVARIAN CANCER RECURRENT
     Route: 042
     Dates: start: 20150915
  2. CAELYX [Suspect]
     Active Substance: DOXORUBICIN HYDROCHLORIDE
     Indication: OVARIAN CANCER RECURRENT
     Route: 042
     Dates: start: 20150915
  3. YONDELIS [Concomitant]
     Active Substance: TRABECTEDIN
     Indication: OVARIAN CANCER RECURRENT
     Route: 042
     Dates: start: 20151110
  4. YONDELIS [Concomitant]
     Active Substance: TRABECTEDIN
     Indication: OVARIAN CANCER RECURRENT
     Route: 042
     Dates: start: 20160119

REACTIONS (5)
  - Pain in extremity [Recovering/Resolving]
  - Palmar erythema [Recovering/Resolving]
  - Systemic sclerosis [Unknown]
  - Palmar-plantar erythrodysaesthesia syndrome [Unknown]
  - Oedema peripheral [Recovering/Resolving]

NARRATIVE: CASE EVENT DATE: 20151110
